FAERS Safety Report 5736862-5 (Version None)
Quarter: 2008Q2

REPORT INFORMATION
  Report Type: 
  Country: None (occurrence: None)
  Receive Date: 20080508
  Receipt Date: 20080428
  Transmission Date: 20081010
  Serious: Yes (Death)
  Sender: FDA-Public Use
  Company Number: E2020-02685-SPO-JP

PATIENT
  Sex: Male

DRUGS (1)
  1. ARICEPT [Suspect]
     Dosage: ORAL, 10 MG, 1 IN 1 D, ORAL
     Route: 048

REACTIONS (1)
  - SUDDEN DEATH [None]
